FAERS Safety Report 10176945 (Version 2)
Quarter: 2014Q2

REPORT INFORMATION
  Report Type: Spontaneous
  Country: US (occurrence: None)
  Receive Date: 20140514
  Receipt Date: 20140523
  Transmission Date: 20141212
  Serious: Yes (Other)
  Sender: FDA-Public Use
  Company Number: 2014-US-005719

PATIENT
  Age: 42 Year
  Sex: Female

DRUGS (2)
  1. XYREM (SODIUM OXYBATE) ORAL SOLUTION, 500 MG/ML [Suspect]
     Indication: NARCOLEPSY
     Route: 048
     Dates: start: 200810
  2. OXYCODONE/APAP [Suspect]
     Indication: PROCEDURAL PAIN
     Route: 048
     Dates: start: 201405, end: 201405

REACTIONS (2)
  - Bladder operation [None]
  - Fatigue [None]
